FAERS Safety Report 9958038 (Version 1)
Quarter: 2014Q1

REPORT INFORMATION
  Report Type: Report from Study
  Country: US (occurrence: US)
  Receive Date: 20140304
  Receipt Date: 20140304
  Transmission Date: 20141002
  Serious: No
  Sender: FDA-Public Use
  Company Number: US-ABBVIE-13P-163-1094289-00

PATIENT
  Age: 62 Year
  Sex: Female

DRUGS (9)
  1. HUMIRA [Suspect]
     Indication: CROHN^S DISEASE
     Dosage: DAY 1
     Dates: start: 20130426, end: 20130426
  2. HUMIRA [Suspect]
     Dosage: DAY 15
  3. SEROQUEL [Concomitant]
     Indication: BIPOLAR DISORDER
  4. CYMBALTA [Concomitant]
     Indication: BIPOLAR DISORDER
  5. KLONOPIN [Concomitant]
     Indication: BIPOLAR DISORDER
  6. RITALIN [Concomitant]
     Indication: BIPOLAR DISORDER
  7. SINGULAIR [Concomitant]
     Indication: ASTHMA
  8. BENICAR [Concomitant]
     Indication: HYPERTENSION
  9. METHOTREXATE [Concomitant]
     Indication: RHEUMATOID ARTHRITIS

REACTIONS (1)
  - Weight increased [Not Recovered/Not Resolved]
